FAERS Safety Report 11296799 (Version 1)
Quarter: 2015Q3

REPORT INFORMATION
  Report Type: Spontaneous
  Country: US (occurrence: US)
  Receive Date: 20150722
  Receipt Date: 20150722
  Transmission Date: 20151125
  Serious: Yes (Other)
  Sender: FDA-Public Use
  Company Number: US-ELI_LILLY_AND_COMPANY-US201008001735

PATIENT
  Age: 60 Year
  Sex: Male
  Weight: 78.91 kg

DRUGS (5)
  1. EFFIENT [Suspect]
     Active Substance: PRASUGREL HYDROCHLORIDE
     Dosage: 10 MG, DAILY (1/D)
     Dates: start: 20100724, end: 20100802
  2. ASA [Concomitant]
     Active Substance: ASPIRIN
     Dosage: 325 MG, UNKNOWN
  3. SIMVASTATIN. [Concomitant]
     Active Substance: SIMVASTATIN
  4. RAMIPRIL. [Concomitant]
     Active Substance: RAMIPRIL
  5. EFFIENT [Suspect]
     Active Substance: PRASUGREL HYDROCHLORIDE
     Indication: STENT PLACEMENT
     Dosage: 60 MG, OTHER
     Dates: start: 20100723, end: 20100723

REACTIONS (4)
  - Haemarthrosis [Recovering/Resolving]
  - Swelling [Recovering/Resolving]
  - Ecchymosis [Recovering/Resolving]
  - Idiosyncratic drug reaction [Recovering/Resolving]

NARRATIVE: CASE EVENT DATE: 20100731
